FAERS Safety Report 25779179 (Version 1)
Quarter: 2025Q3

REPORT INFORMATION
  Report Type: Spontaneous
  Country: US (occurrence: None)
  Receive Date: 20250908
  Receipt Date: 20250908
  Transmission Date: 20251020
  Serious: Yes (Hospitalization)
  Sender: FDA-CTU
  Company Number: None

PATIENT
  Age: 52 Year

DRUGS (1)
  1. IBSRELA [Suspect]
     Active Substance: TENAPANOR HYDROCHLORIDE
     Indication: Irritable bowel syndrome
     Dosage: 50 MG BID ORAL?
     Route: 048
     Dates: start: 20250720

REACTIONS (3)
  - Uterine perforation [None]
  - Pneumonia [None]
  - Intentional dose omission [None]

NARRATIVE: CASE EVENT DATE: 20250801
